FAERS Safety Report 8316662-2 (Version None)
Quarter: 2012Q2

REPORT INFORMATION
  Report Type: 
  Country: None (occurrence: None)
  Receive Date: 20120427
  Receipt Date: 20120425
  Transmission Date: 20120825
  Serious: Yes (Hospitalization, Other)
  Sender: FDA-Public Use
  Company Number: PHHY2011NL89075

PATIENT
  Sex: Male

DRUGS (11)
  1. ZOMETA [Suspect]
     Indication: PROSTATE CANCER METASTATIC
     Dosage: 4 MG/ 5 ML
     Route: 042
     Dates: start: 20100518
  2. DICLOFENAC [Concomitant]
  3. OXYCODONE HCL [Concomitant]
  4. ZOMETA [Suspect]
     Dosage: 4 MG/ 5 ML
     Route: 042
     Dates: start: 20111010
  5. ZOMETA [Suspect]
     Dosage: 4 MG/ 5 ML
     Route: 042
     Dates: start: 20120229
  6. CHEMOTHERAPEUTICS [Concomitant]
  7. ZOMETA [Suspect]
     Dosage: 4 MG/ 5 ML
     Dates: start: 20120425
  8. ZOMETA [Suspect]
     Dosage: 4 MG/ 5 ML
     Route: 042
     Dates: start: 20110916
  9. PREDNISOLONE [Concomitant]
  10. LIPITOR [Concomitant]
  11. PANTOPRAZOLE [Concomitant]

REACTIONS (5)
  - NEOPLASM PROGRESSION [None]
  - BONE PAIN [None]
  - GENERAL PHYSICAL HEALTH DETERIORATION [None]
  - BACK PAIN [None]
  - NEOPLASM MALIGNANT [None]
